FAERS Safety Report 4639939-0 (Version None)
Quarter: 2005Q2

REPORT INFORMATION
  Report Type: 
  Country: None (occurrence: None)
  Receive Date: 20050415
  Receipt Date: 20050415
  Transmission Date: 20051028
  Serious: No
  Sender: FDA-Public Use
  Company Number: None

PATIENT
  Sex: Female
  Weight: 70.7611 kg

DRUGS (3)
  1. ENBREL [Suspect]
     Dosage: 25 MG S/Q TWICE/WEEK
     Route: 058
     Dates: start: 20040401, end: 20041001
  2. ENBREL [Suspect]
     Dosage: 25 MG S/Q TWICE/WEEK
     Route: 058
     Dates: start: 20041129
  3. IBUPROFEN [Concomitant]

REACTIONS (3)
  - AMENORRHOEA [None]
  - FUNGAL SKIN INFECTION [None]
  - ONYCHOMYCOSIS [None]
